FAERS Safety Report 5951148-1 (Version None)
Quarter: 2008Q4

REPORT INFORMATION
  Report Type: 
  Country: None (occurrence: None)
  Receive Date: 20081112
  Receipt Date: 20081112
  Transmission Date: 20090506
  Serious: Yes (Hospitalization, Other)
  Sender: FDA-Public Use
  Company Number: None

PATIENT
  Age: 10 Year
  Sex: Male
  Weight: 25.4014 kg

DRUGS (1)
  1. ABILIFY [Suspect]
     Indication: AFFECTIVE DISORDER
     Dosage: 1 BEDTITME PO
     Route: 048
     Dates: start: 20081001, end: 20081007

REACTIONS (2)
  - CONVULSION [None]
  - SLEEP TERROR [None]
